FAERS Safety Report 5512006-X (Version None)
Quarter: 2007Q4

REPORT INFORMATION
  Report Type: 
  Country: None (occurrence: None)
  Receive Date: 20071109
  Receipt Date: 20071030
  Transmission Date: 20080405
  Serious: Yes (Other)
  Sender: FDA-Public Use
  Company Number: MX-PFIZER INC-2007093128

PATIENT
  Sex: Female
  Weight: 80 kg

DRUGS (1)
  1. CHAMPIX [Suspect]
     Route: 048
     Dates: start: 20070901, end: 20070901

REACTIONS (2)
  - BRONCHOPNEUMONIA [None]
  - ODYNOPHAGIA [None]
